FAERS Safety Report 9715699 (Version 3)
Quarter: 2013Q4

REPORT INFORMATION
  Report Type: Report from Study
  Country: US (occurrence: US)
  Receive Date: 20131127
  Receipt Date: 20131209
  Transmission Date: 20140711
  Serious: Yes (Death, Other)
  Sender: FDA-Public Use
  Company Number: US-ROCHE-1308805

PATIENT
  Sex: Male

DRUGS (11)
  1. LUCENTIS [Suspect]
     Indication: AGE-RELATED MACULAR DEGENERATION
     Route: 050
  2. LUCENTIS [Suspect]
     Indication: DELAYED EFFECTS OF RADIATION
  3. LUCENTIS [Suspect]
     Indication: RETINAL VEIN OCCLUSION
  4. AVASTIN [Suspect]
     Indication: AGE-RELATED MACULAR DEGENERATION
     Route: 065
  5. AVASTIN [Suspect]
     Indication: DELAYED EFFECTS OF RADIATION
  6. TEMODAR [Concomitant]
     Route: 065
  7. DEPAKOTE [Concomitant]
     Route: 065
  8. TYLENOL WITH CODEINE #3 (UNITED STATES) [Concomitant]
  9. IBUPROFEN [Concomitant]
     Route: 065
  10. ZOFRAN [Concomitant]
     Route: 065
  11. DECADRON [Concomitant]
     Route: 065

REACTIONS (6)
  - Death [Fatal]
  - Brain neoplasm malignant [Unknown]
  - Papilloedema [Unknown]
  - Brain mass [Unknown]
  - Posterior capsule opacification [Unknown]
  - Bedridden [Unknown]
